FAERS Safety Report 23454703 (Version 2)
Quarter: 2024Q2

REPORT INFORMATION
  Report Type: Spontaneous
  Country: US (occurrence: US)
  Receive Date: 20240130
  Receipt Date: 20240410
  Transmission Date: 20240716
  Serious: Yes (Disabling, Other)
  Sender: FDA-Public Use
  Company Number: US-HORIZON THERAPEUTICS-HZN-2024-000982

PATIENT

DRUGS (15)
  1. TEPEZZA [Suspect]
     Active Substance: TEPROTUMUMAB-TRBW
     Indication: Endocrine ophthalmopathy
     Dosage: FIRST INFUSION
     Route: 042
     Dates: start: 20230330
  2. TEPEZZA [Suspect]
     Active Substance: TEPROTUMUMAB-TRBW
     Dosage: LAST INFUSION
     Route: 042
     Dates: start: 20230824
  3. PEPCID [Concomitant]
     Active Substance: FAMOTIDINE
     Dosage: 10 MG, BID
     Route: 048
     Dates: start: 20211101
  4. NEURONTIN [Concomitant]
     Active Substance: GABAPENTIN
     Dosage: 300 MG, QD
     Route: 048
     Dates: start: 20230428
  5. ZESTRIL [Concomitant]
     Active Substance: LISINOPRIL
     Dosage: 20 MG, QD
     Route: 048
     Dates: start: 20230428
  6. TAPAZOLE [Concomitant]
     Active Substance: METHIMAZOLE
     Dosage: UNK UNK, QD, 1.5 TABLETS
     Route: 048
     Dates: start: 20230112
  7. TOPROL XL [Concomitant]
     Active Substance: METOPROLOL SUCCINATE
     Dosage: 50 MG
     Route: 048
     Dates: start: 20240328
  8. PROTONIX [Concomitant]
     Active Substance: PANTOPRAZOLE SODIUM
     Dosage: 20 MG, QD
     Route: 048
     Dates: start: 20230428
  9. ZOLOFT [Concomitant]
     Active Substance: SERTRALINE HYDROCHLORIDE
     Dosage: 50 MG, QD
     Route: 048
  10. XARELTO [Concomitant]
     Active Substance: RIVAROXABAN
     Indication: Pulmonary embolism
     Dosage: 20 MG, QD
     Route: 048
     Dates: start: 20210915
  11. LOPRESSOR [Concomitant]
     Active Substance: METOPROLOL TARTRATE
     Dosage: 25 MG, QD
     Route: 048
  12. LACRI-LUBE [Concomitant]
     Dosage: UNK UNK, QD, EVERY EVENING
  13. EFFEXOR [Concomitant]
     Active Substance: VENLAFAXINE HYDROCHLORIDE
     Dosage: 75 MG, QD
     Route: 048
  14. FLUOCINONIDE [Concomitant]
     Active Substance: FLUOCINONIDE
  15. HYDROCORTISONE [Concomitant]
     Active Substance: HYDROCORTISONE

REACTIONS (16)
  - Disability [Not Recovered/Not Resolved]
  - Physical disability [Not Recovered/Not Resolved]
  - Deafness [Not Recovered/Not Resolved]
  - Pain [Not Recovered/Not Resolved]
  - Emotional distress [Not Recovered/Not Resolved]
  - Economic problem [Not Recovered/Not Resolved]
  - Impaired quality of life [Not Recovered/Not Resolved]
  - Anxiety [Not Recovered/Not Resolved]
  - Injury [Not Recovered/Not Resolved]
  - Concomitant disease aggravated [Not Recovered/Not Resolved]
  - Discomfort [Unknown]
  - Product quality issue [Unknown]
  - Diplopia [Not Recovered/Not Resolved]
  - Lacrimation increased [Not Recovered/Not Resolved]
  - Infusion site bruising [Unknown]
  - Tinnitus [Not Recovered/Not Resolved]

NARRATIVE: CASE EVENT DATE: 20230101
